FAERS Safety Report 7531832-9 (Version None)
Quarter: 2011Q2

REPORT INFORMATION
  Report Type: 
  Country: None (occurrence: None)
  Receive Date: 20110608
  Receipt Date: 20110527
  Transmission Date: 20111010
  Serious: Yes (Hospitalization, Other)
  Sender: FDA-Public Use
  Company Number: US-ASTRAZENECA-2011SE03361

PATIENT
  Age: 962 Month
  Sex: Female

DRUGS (9)
  1. CITALOPRAM HYDROBROMIDE [Concomitant]
  2. ARIMIDEX [Suspect]
     Dosage: GENERIC
     Route: 048
     Dates: start: 20100101
  3. LASIX [Concomitant]
  4. ANTIBIOTICS [Suspect]
  5. DIOVAN [Concomitant]
  6. NEXIUM [Suspect]
     Route: 048
  7. ASPIRIN [Concomitant]
  8. ARIMIDEX [Suspect]
     Route: 048
     Dates: start: 20060101
  9. VITAMIN TAB [Concomitant]

REACTIONS (8)
  - KNEE ARTHROPLASTY [None]
  - FALL [None]
  - WRIST FRACTURE [None]
  - DRY MOUTH [None]
  - OROPHARYNGEAL PAIN [None]
  - TOOTH EXTRACTION [None]
  - BONE PAIN [None]
  - OSTEOARTHRITIS [None]
